FAERS Safety Report 6969541-7 (Version None)
Quarter: 2010Q3

REPORT INFORMATION
  Report Type: 
  Country: None (occurrence: None)
  Receive Date: 20100907
  Receipt Date: 20100907
  Transmission Date: 20110219
  Serious: No
  Sender: FDA-Public Use
  Company Number: None

PATIENT
  Age: 31 Year
  Sex: Female
  Weight: 215.4586 kg

DRUGS (1)
  1. XENICAL [Suspect]
     Dosage: REGURLAR THREE TIMES DAILY
     Dates: start: 19990105, end: 20000609

REACTIONS (5)
  - ABDOMINAL PAIN UPPER [None]
  - CHOLECYSTECTOMY [None]
  - DRUG EFFECT DECREASED [None]
  - HYSTERECTOMY [None]
  - MENORRHAGIA [None]
